FAERS Safety Report 21989171 (Version 1)
Quarter: 2023Q1

REPORT INFORMATION
  Report Type: Spontaneous
  Country: SA (occurrence: SA)
  Receive Date: 20230214
  Receipt Date: 20230214
  Transmission Date: 20230418
  Serious: Yes (Death)
  Sender: FDA-Public Use
  Company Number: SA-SA-SAC20230213001478

PATIENT
  Age: 18 Year
  Sex: Female
  Weight: 38 kg

DRUGS (1)
  1. ALDURAZYME [Suspect]
     Active Substance: LARONIDASE
     Indication: Mucopolysaccharidosis I
     Dosage: 7 DF
     Route: 065

REACTIONS (3)
  - Post procedural complication [Fatal]
  - Cardiac disorder [Unknown]
  - Disease progression [Unknown]
